FAERS Safety Report 5422862-1 (Version None)
Quarter: 2007Q3

REPORT INFORMATION
  Report Type: 
  Country: None (occurrence: None)
  Receive Date: 20070822
  Receipt Date: 20070814
  Transmission Date: 20080115
  Serious: Yes (Other)
  Sender: FDA-Public Use
  Company Number: GB-AMGEN-US235844

PATIENT
  Sex: Female
  Weight: 63.3 kg

DRUGS (9)
  1. ENBREL [Suspect]
     Indication: RHEUMATOID ARTHRITIS
     Dates: start: 20060814, end: 20061201
  2. PREDNISOLONE [Concomitant]
     Indication: RHEUMATOID ARTHRITIS
     Route: 048
  3. PANTOPRAZOLE SODIUM [Concomitant]
     Indication: PROPHYLAXIS AGAINST GASTROINTESTINAL ULCER
     Route: 048
  4. VALSARTAN [Concomitant]
     Indication: HYPERTENSION
     Route: 048
     Dates: start: 20050901
  5. CO-TENIDONE [Concomitant]
     Indication: HYPERTENSION
     Dosage: 100MG/ 25MG DAILY
     Route: 048
  6. ADCAL [Concomitant]
     Dosage: TWO TABLETS TAKEN DAILY
     Route: 048
  7. MELOXICAM [Concomitant]
     Route: 048
  8. LEFLUNOMIDE [Concomitant]
     Indication: RHEUMATOID ARTHRITIS
     Route: 048
     Dates: start: 20070201
  9. CO-PROXAMOL [Concomitant]
     Indication: ANALGESIA
     Dosage: TWO TABLETS FOUR TIMES A DAY
     Route: 048

REACTIONS (2)
  - LUNG DISORDER [None]
  - LUNG NEOPLASM MALIGNANT [None]
